FAERS Safety Report 7582438-7 (Version None)
Quarter: 2011Q2

REPORT INFORMATION
  Report Type: 
  Country: None (occurrence: None)
  Receive Date: 20110630
  Receipt Date: 20110623
  Transmission Date: 20111010
  Serious: No
  Sender: FDA-Public Use
  Company Number: US-PFIZER INC-2011139949

PATIENT
  Sex: Male
  Weight: 113.4 kg

DRUGS (2)
  1. ALLOPURINOL [Concomitant]
     Dosage: 100 MG, UNK
  2. SUTENT [Suspect]
     Dosage: 50 MG, CYCLIC
     Route: 048

REACTIONS (3)
  - DIARRHOEA [None]
  - ORAL PAIN [None]
  - NAUSEA [None]
